FAERS Safety Report 4592355-2 (Version None)
Quarter: 2005Q1

REPORT INFORMATION
  Report Type: 
  Country: None (occurrence: None)
  Receive Date: 20050228
  Receipt Date: 20041216
  Transmission Date: 20050727
  Serious: Yes (Other)
  Sender: FDA-Public Use
  Company Number: US-BRISTOL-MYERS SQUIBB COMPANY-12797692

PATIENT
  Age: 20 Year
  Sex: Female
  Weight: 47 kg

DRUGS (4)
  1. ABILIFY [Suspect]
     Indication: DEPRESSION
     Route: 048
     Dates: start: 20041201, end: 20041207
  2. SEROQUEL [Concomitant]
  3. LEXAPRO [Concomitant]
  4. STRATTERA [Concomitant]

REACTIONS (3)
  - DYSKINESIA [None]
  - FEELING HOT [None]
  - RESTLESS LEGS SYNDROME [None]
